FAERS Safety Report 10653733 (Version 1)
Quarter: 2014Q4

REPORT INFORMATION
  Report Type: Spontaneous
  Country: CN (occurrence: CN)
  Receive Date: 20141216
  Receipt Date: 20141216
  Transmission Date: 20150529
  Serious: Yes (Other)
  Sender: FDA-Public Use
  Company Number: CN-ABBVIE-14P-035-1319771-00

PATIENT
  Sex: Male

DRUGS (1)
  1. DEPAKINE CHRONO [Suspect]
     Active Substance: VALPROATE SODIUM
     Indication: EPILEPSY
     Route: 048
     Dates: start: 201104, end: 20141205

REACTIONS (5)
  - Coma [Recovered/Resolved]
  - Loss of consciousness [Unknown]
  - Gastrointestinal disorder [Unknown]
  - Dyskinesia [Unknown]
  - Dyspnoea [Unknown]
